FAERS Safety Report 6493976-2 (Version None)
Quarter: 2009Q4

REPORT INFORMATION
  Report Type: 
  Country: None (occurrence: None)
  Receive Date: 20091214
  Receipt Date: 20081203
  Transmission Date: 20100525
  Serious: No
  Sender: FDA-Public Use
  Company Number: US-BRISTOL-MYERS SQUIBB COMPANY-14428718

PATIENT
  Age: 11 Year
  Sex: Male
  Weight: 72 kg

DRUGS (6)
  1. ABILIFY [Suspect]
     Indication: BIPOLAR DISORDER
     Dosage: 5MG/D FOR 1 MONTH + 10MG/D FOR 3 MONTHS TAKEN 4 MONTHS AGO
  2. LAMICTAL [Concomitant]
     Dates: start: 20081202
  3. ADDERALL 10 [Concomitant]
  4. CELEXA [Concomitant]
  5. PROVENTIL GENTLEHALER [Concomitant]
  6. TENEX [Concomitant]

REACTIONS (1)
  - WEIGHT INCREASED [None]
